FAERS Safety Report 22238293 (Version 1)
Quarter: 2023Q2

REPORT INFORMATION
  Report Type: Spontaneous
  Country: BR (occurrence: BR)
  Receive Date: 20230421
  Receipt Date: 20230421
  Transmission Date: 20230722
  Serious: Yes (Hospitalization, Other)
  Sender: FDA-Public Use
  Company Number: BR-ALKEM LABORATORIES LIMITED-BR-ALKEM-2023-02617

PATIENT
  Age: 36 Year
  Sex: Male

DRUGS (10)
  1. AZATHIOPRINE [Suspect]
     Active Substance: AZATHIOPRINE
     Indication: Pemphigus
     Dosage: 100 MG/DAY
     Route: 065
     Dates: start: 202009, end: 202012
  2. MYCOPHENOLATE MOFETIL [Suspect]
     Active Substance: MYCOPHENOLATE MOFETIL
     Indication: Pemphigus
     Dosage: 3 GRAMS/DAY
     Route: 065
     Dates: start: 202012
  3. MYCOPHENOLATE MOFETIL [Suspect]
     Active Substance: MYCOPHENOLATE MOFETIL
     Dosage: 2 GRAMS/DAY
     Route: 065
     Dates: start: 20210331
  4. PREDNISONE [Suspect]
     Active Substance: PREDNISONE
     Indication: Pemphigus
     Dosage: 40 MG/DAY
     Route: 065
     Dates: start: 202009
  5. PREDNISONE [Suspect]
     Active Substance: PREDNISONE
     Dosage: 15 MG/DAY
     Route: 065
     Dates: start: 20210331
  6. PREDNISONE [Suspect]
     Active Substance: PREDNISONE
     Dosage: 30 MG/DAY (MONOTHERAPY)
     Route: 065
  7. PREDNISONE [Suspect]
     Active Substance: PREDNISONE
     Dosage: 7.5 MG/DAY, (REMISSION)
     Route: 065
  8. RITUXIMAB [Suspect]
     Active Substance: RITUXIMAB
     Indication: Pemphigus
     Dosage: 1 GRAM, BID (TWO 1G INFUSIONS)
     Route: 042
     Dates: start: 20210118
  9. RITUXIMAB [Suspect]
     Active Substance: RITUXIMAB
     Dosage: 1 GRAM, BID (TWO 1G INFUSIONS)
     Route: 042
     Dates: start: 20210205
  10. DOXYCYCLINE [Concomitant]
     Active Substance: DOXYCYCLINE
     Indication: Pemphigus
     Dosage: 200 MG/DAY
     Route: 065
     Dates: start: 202009

REACTIONS (3)
  - COVID-19 [Recovered/Resolved]
  - Skin infection [Unknown]
  - Therapy non-responder [Unknown]
